FAERS Safety Report 8872939 (Version 1)
Quarter: 2012Q4

REPORT INFORMATION
  Report Type: Report from Study
  Country: CA (occurrence: CA)
  Receive Date: 20121030
  Receipt Date: 20121030
  Transmission Date: 20130627
  Serious: Yes (Other)
  Sender: FDA-Public Use
  Company Number: CA-ROCHE-1149852

PATIENT
  Sex: Male

DRUGS (4)
  1. VEMURAFENIB [Suspect]
     Indication: METASTATIC MALIGNANT MELANOMA
     Route: 048
     Dates: start: 201208, end: 201210
  2. DEXAMETHASONE [Concomitant]
  3. KAYEXALATE [Concomitant]
  4. RANITIDINE [Concomitant]

REACTIONS (2)
  - Disease progression [Not Recovered/Not Resolved]
  - Neoplasm [Not Recovered/Not Resolved]
